FAERS Safety Report 4632602-1 (Version None)
Quarter: 2005Q2

REPORT INFORMATION
  Report Type: 
  Country: None (occurrence: None)
  Receive Date: 20050411
  Receipt Date: 20050316
  Transmission Date: 20051028
  Serious: Yes (Life-Threatening)
  Sender: FDA-Public Use
  Company Number: JP-MERCK-0503USA03112

PATIENT
  Age: 5 Year
  Sex: Male

DRUGS (2)
  1. DECADRON [Suspect]
     Indication: ACUTE LYMPHOCYTIC LEUKAEMIA
     Route: 048
     Dates: start: 20030929, end: 20031003
  2. PREDNISOLONE [Suspect]
     Indication: ACUTE LYMPHOCYTIC LEUKAEMIA
     Route: 065
     Dates: start: 20030519, end: 20030822

REACTIONS (2)
  - DRUG INEFFECTIVE [None]
  - PANCREATITIS ACUTE [None]
